FAERS Safety Report 11642686 (Version 5)
Quarter: 2016Q1

REPORT INFORMATION
  Report Type: Spontaneous
  Country: US (occurrence: US)
  Receive Date: 20151020
  Receipt Date: 20160125
  Transmission Date: 20160525
  Serious: Yes (Other)
  Sender: FDA-Public Use
  Company Number: US-HOSPIRA-3042025

PATIENT
  Age: 39 Year
  Sex: Female
  Weight: 60.5 kg

DRUGS (5)
  1. BUSULFAN [Suspect]
     Active Substance: BUSULFAN
     Indication: BONE MARROW CONDITIONING REGIMEN
     Dosage: DAYS 1-7 PRIOR TO SCT
     Route: 042
     Dates: start: 20150318, end: 20150324
  2. ATG RABBIT [Suspect]
     Active Substance: LAPINE T-LYMPHOCYTE IMMUNE GLOBULIN
     Indication: BONE MARROW CONDITIONING REGIMEN
     Dosage: DAYS 1-7 PRIOR TO SCT
     Route: 042
     Dates: start: 20150318, end: 20150324
  3. RITUXIMAB [Suspect]
     Active Substance: RITUXIMAB
     Indication: ACUTE LYMPHOCYTIC LEUKAEMIA
     Dosage: DAYS 2 AND 8, CYCLES 1-4
     Route: 042
     Dates: start: 20140502, end: 20150218
  4. INOTUZUMAB [Suspect]
     Active Substance: INOTUZUMAB OZOGAMICIN
     Indication: ACUTE LYMPHOCYTIC LEUKAEMIA
     Dosage: DAY 3, CYCLES 1-4
     Route: 042
     Dates: start: 20140503, end: 20150212
  5. FLUDARABINE PHOSPHATE. [Suspect]
     Active Substance: FLUDARABINE PHOSPHATE
     Indication: BONE MARROW CONDITIONING REGIMEN
     Dosage: DAYS 1-7 PRIOR TO SCT
     Route: 042
     Dates: start: 20150318, end: 20150324

REACTIONS (4)
  - Transaminases increased [Unknown]
  - Abdominal pain [Not Recovered/Not Resolved]
  - Venoocclusive liver disease [Not Recovered/Not Resolved]
  - Ascites [Not Recovered/Not Resolved]

NARRATIVE: CASE EVENT DATE: 20150501
